FAERS Safety Report 19918661 (Version 1)
Quarter: 2021Q4

REPORT INFORMATION
  Report Type: Spontaneous
  Country: IT (occurrence: IT)
  Receive Date: 20211005
  Receipt Date: 20211005
  Transmission Date: 20220303
  Serious: Yes (Other)
  Sender: FDA-Public Use
  Company Number: IT-PFIZER INC-2021551474

PATIENT
  Age: 27 Year
  Sex: Male

DRUGS (6)
  1. EPIRUBICIN [Suspect]
     Active Substance: EPIRUBICIN
     Indication: Sarcoma
     Dosage: UNK
  2. IFOSFAMIDE [Suspect]
     Active Substance: IFOSFAMIDE
     Indication: Sarcoma
     Dosage: UNK
  3. ETOPOSIDE [Suspect]
     Active Substance: ETOPOSIDE
     Indication: Sarcoma
     Dosage: UNK
  4. CARBOPLATIN [Suspect]
     Active Substance: CARBOPLATIN
     Indication: Sarcoma
     Dosage: UNK
  5. ACTINOMYCIN D [Suspect]
     Active Substance: DACTINOMYCIN
     Indication: Sarcoma
     Dosage: UNK
  6. VINCRISTINE SULFATE [Suspect]
     Active Substance: VINCRISTINE SULFATE
     Indication: Sarcoma
     Dosage: UNK

REACTIONS (2)
  - Salivary gland cancer [Recovered/Resolved]
  - Second primary malignancy [Recovered/Resolved]
